FAERS Safety Report 20741172 (Version 1)
Quarter: 2022Q2

REPORT INFORMATION
  Report Type: Spontaneous
  Country: US (occurrence: US)
  Receive Date: 20220422
  Receipt Date: 20220422
  Transmission Date: 20220721
  Serious: No
  Sender: FDA-Public Use
  Company Number: US-PFIZER INC-202101091233

PATIENT
  Age: 64 Year
  Sex: Female
  Weight: 68.04 kg

DRUGS (1)
  1. EXEMESTANE [Suspect]
     Active Substance: EXEMESTANE
     Indication: Breast cancer female
     Dosage: 25 MG, 1X/DAY, (IN THE EVENING RIGHT AFTER A MEAL)
     Dates: start: 20210625

REACTIONS (4)
  - Memory impairment [Unknown]
  - Product dose omission issue [Unknown]
  - Poor quality product administered [Unknown]
  - Product taste abnormal [Unknown]
